FAERS Safety Report 9239827 (Version 2)
Quarter: 2013Q4

REPORT INFORMATION
  Report Type: Spontaneous
  Country: US (occurrence: US)
  Receive Date: 20130418
  Receipt Date: 20131219
  Transmission Date: 20140711
  Serious: No
  Sender: FDA-Public Use
  Company Number: US-009507513-1304USA007747

PATIENT
  Sex: 0

DRUGS (1)
  1. EMEND [Suspect]
     Dosage: 150 MG, UNKNOWN FREQUENCY
     Route: 042

REACTIONS (1)
  - Adverse event [Unknown]
